FAERS Safety Report 8622091-4 (Version None)
Quarter: 2012Q3

REPORT INFORMATION
  Report Type: 
  Country: None (occurrence: None)
  Receive Date: 20120826
  Receipt Date: 20120815
  Transmission Date: 20120928
  Serious: Yes (Other)
  Sender: FDA-Public Use
  Company Number: GB-TEVA-353945ISR

PATIENT
  Sex: Female

DRUGS (36)
  1. POTASSIUM CHLORIDE [Suspect]
     Dosage: 20 DF, BID
     Route: 048
     Dates: start: 20090901
  2. DIPHENOXYLATE AND ATROPINE [Suspect]
     Indication: DIARRHOEA
     Dosage: 2.5 MG, UNK
     Route: 048
  3. DIGOXIN [Suspect]
     Dosage: 125 UG, UNK
     Route: 048
  4. PREDNISONE TAB [Suspect]
     Dosage: 5 MG, UNK
     Route: 048
  5. AMLODIPINE [Concomitant]
  6. PHENOXYBENZAMINE HYDROCHLORIDE [Concomitant]
     Dates: start: 20090101
  7. TERIPARATIDE [Concomitant]
     Dates: start: 20090101
  8. DICYCLOMINE HYDROCHLORIDE [Suspect]
     Dosage: 10 MG, QID
     Route: 048
     Dates: start: 20090501
  9. ASPIRIN [Concomitant]
     Dates: start: 20090501
  10. METOLAZONE [Concomitant]
     Dates: start: 20090101
  11. MULTI-VITAMIN [Concomitant]
  12. SALMETEROL AND FLUTICASONE [Suspect]
     Dosage: UNK, BID
     Route: 055
     Dates: start: 20090513
  13. MEMANTINE HCL [Concomitant]
     Dates: start: 20090101
  14. PSYLLIUM [Concomitant]
     Dates: start: 20090101
  15. DIGOXIN [Suspect]
     Dosage: UNK, QD
     Route: 048
  16. DICYCLOMINE HYDROCHLORIDE [Suspect]
     Dosage: 10 MG, QID
     Route: 048
     Dates: start: 20090701, end: 20090801
  17. ACETAMINOPHEN [Concomitant]
     Dates: start: 20090101
  18. SACCHAROMYCES BOULARDII [Concomitant]
     Dates: start: 20090101
  19. LEVOTHYROXINE SODIUM [Concomitant]
     Dates: start: 20090101
  20. OMEPRAZOLE [Concomitant]
     Dates: start: 20090501
  21. METAXALONE [Suspect]
     Dosage: 400 MG, QID
     Route: 048
  22. EZETIMIBE [Concomitant]
  23. FENTANYL [Concomitant]
     Dates: start: 20090101
  24. ESOMEPRAZOLE SODIUM [Concomitant]
     Dates: start: 20090501
  25. HYDROCODONE BITARTRATE [Concomitant]
  26. LEVALBUTEROL HCL [Concomitant]
     Dosage: UNK, UNK
     Dates: start: 20090101
  27. ROSUVASTATIN [Concomitant]
  28. SUCRALFATE [Suspect]
     Dosage: 1 G, QID
     Route: 048
  29. POTASSIUM CHLORIDE [Suspect]
     Dosage: UNK, QD
     Route: 048
     Dates: start: 20090101
  30. CARISOPRODOL [Suspect]
  31. CALCIUM AND VITAMIN D [Concomitant]
  32. FUROSEMIDE [Suspect]
  33. LORAZEPAM [Suspect]
     Indication: SLEEP DISORDER
     Dosage: UNK, HS
     Route: 048
  34. LORAZEPAM [Suspect]
     Dosage: 0.5 MG, HS
     Route: 048
     Dates: start: 20090501
  35. METOPROLOL TARTRATE [Concomitant]
     Dates: start: 20090101
  36. VITAMIN D [Concomitant]
     Dates: start: 20090101

REACTIONS (7)
  - DELIRIUM [None]
  - DEPRESSION [None]
  - CONSTIPATION [None]
  - URINARY TRACT INFECTION [None]
  - DEHYDRATION [None]
  - WEIGHT DECREASED [None]
  - VISUAL IMPAIRMENT [None]
